FAERS Safety Report 20455311 (Version 1)
Quarter: 2022Q1

REPORT INFORMATION
  Report Type: Spontaneous
  Country: US (occurrence: US)
  Receive Date: 20220210
  Receipt Date: 20220210
  Transmission Date: 20220423
  Serious: No
  Sender: FDA-Public Use
  Company Number: US-PFIZER INC-2021672901

PATIENT
  Age: 79 Year
  Sex: Female

DRUGS (2)
  1. INLYTA [Suspect]
     Active Substance: AXITINIB
     Dosage: 1 MG
     Dates: start: 20210507
  2. INLYTA [Suspect]
     Active Substance: AXITINIB
     Dosage: 1 MG
     Dates: start: 20210528

REACTIONS (6)
  - Fatigue [Unknown]
  - Fatigue [Unknown]
  - Decreased appetite [Unknown]
  - Oral pain [Unknown]
  - Weight decreased [Unknown]
  - Stomatitis [Unknown]
